FAERS Safety Report 17409479 (Version 5)
Quarter: 2022Q4

REPORT INFORMATION
  Report Type: Spontaneous
  Country: US (occurrence: US)
  Receive Date: 20200212
  Receipt Date: 20221020
  Transmission Date: 20230112
  Serious: Yes (Hospitalization, Other)
  Sender: FDA-Public Use
  Company Number: US-PFIZER INC-2020060758

PATIENT
  Age: 65 Year
  Sex: Female

DRUGS (1)
  1. VYNDAMAX [Suspect]
     Active Substance: TAFAMIDIS
     Dosage: 61 MG

REACTIONS (5)
  - Brain injury [Recovering/Resolving]
  - Fall [Recovering/Resolving]
  - Neck surgery [Recovering/Resolving]
  - Malaise [Unknown]
  - Product dose omission issue [Unknown]
